FAERS Safety Report 8215291-9 (Version None)
Quarter: 2012Q1

REPORT INFORMATION
  Report Type: 
  Country: None (occurrence: None)
  Receive Date: 20120316
  Receipt Date: 20120302
  Transmission Date: 20120608
  Serious: Yes (Other)
  Sender: FDA-Public Use
  Company Number: DE-CELGENEUS-062-21660-12021003

PATIENT
  Age: 51 Year
  Sex: Female
  Weight: 57 kg

DRUGS (2)
  1. ABRAXANE [Suspect]
     Dosage: 260 MILLIGRAM/SQ. METER
     Route: 065
     Dates: start: 20120119
  2. ABRAXANE [Suspect]
     Dosage: 220 MILLIGRAM/SQ. METER
     Route: 050

REACTIONS (1)
  - STOMATITIS [None]
